FAERS Safety Report 14045030 (Version 7)
Quarter: 2019Q4

REPORT INFORMATION
  Report Type: Spontaneous
  Country: KR (occurrence: KR)
  Receive Date: 20171005
  Receipt Date: 20191125
  Transmission Date: 20200122
  Serious: Yes (Other)
  Sender: FDA-Public Use
  Company Number: KR-009507513-1710KOR000175

PATIENT
  Age: 53 Year
  Sex: Male

DRUGS (12)
  1. BEARSE [Concomitant]
     Active Substance: DIMETHICONE\PANCRELIPASE\URSODIOL
     Indication: DYSPEPSIA
     Dosage: 1 TAB, QD (ONCE DAILY)
     Route: 048
     Dates: start: 20170522, end: 20170523
  2. ZOYLEX [Concomitant]
     Indication: INFECTION PROPHYLAXIS
     Dosage: 400 MILLIGRAM, BID (TWICE DAILY)
     Route: 048
     Dates: start: 20170523, end: 20170628
  3. PLAKON [Concomitant]
     Indication: ALLERGY PROPHYLAXIS
     Dosage: 3 MILLIGRAM, PRN (AS NEEDED) (STRENGTH: 3 MG/2 ML)
     Route: 042
     Dates: start: 20170519
  4. NOXAFIL [Suspect]
     Active Substance: POSACONAZOLE
     Indication: ANTIFUNGAL PROPHYLAXIS
     Dosage: 300 MG, TWICE A DAY
     Route: 048
     Dates: start: 20170523, end: 20170523
  5. ZYLORIC [Concomitant]
     Active Substance: ALLOPURINOL
     Indication: PROPHYLAXIS
     Dosage: 300 MILLIGRAM, QD (ONCE DAILY)
     Route: 048
     Dates: start: 20170518, end: 20170523
  6. MACPERAN [Concomitant]
     Active Substance: METOCLOPRAMIDE HYDROCHLORIDE
     Indication: DYSPEPSIA
     Dosage: 10 MILLIGRAM, QD (ONCE DAILY)
     Route: 042
     Dates: start: 20170521, end: 20170605
  7. NOXAFIL [Suspect]
     Active Substance: POSACONAZOLE
     Dosage: 300 MG, ONCE A DAY
     Route: 048
     Dates: start: 20170524, end: 20170901
  8. CIPROBAY (CIPROFLOXACIN HYDROCHLORIDE) [Concomitant]
     Active Substance: CIPROFLOXACIN HYDROCHLORIDE
     Indication: INFECTION PROPHYLAXIS
     Dosage: 500 MILLIGRAM, BID (TWICE A DAY)
     Route: 048
     Dates: start: 20170522, end: 20170614
  9. CYTARABINE. [Concomitant]
     Active Substance: CYTARABINE
     Indication: ACUTE MYELOID LEUKAEMIA RECURRENT
     Dosage: 410 MILLIGRAM, QD (ONCE DAILY)
     Route: 042
     Dates: start: 20170519, end: 20170525
  10. SEPTRIN [Concomitant]
     Active Substance: SULFAMETHOXAZOLE\TRIMETHOPRIM
     Indication: INFECTION PROPHYLAXIS
     Dosage: 2 TAB, ONCE OF TWO DAYS
     Route: 048
     Dates: start: 20170519, end: 20170626
  11. ZAVEL [Concomitant]
     Active Substance: IDARUBICIN HYDROCHLORIDE
     Indication: ACUTE MYELOID LEUKAEMIA RECURRENT
     Dosage: 24 MILLIGRAM, QD (ONCE DAILY)
     Route: 042
     Dates: start: 20170519, end: 20170521
  12. ALOXI [Concomitant]
     Active Substance: PALONOSETRON HYDROCHLORIDE
     Indication: PROPHYLAXIS OF NAUSEA AND VOMITING
     Dosage: 5 MILLILITER, QD
     Route: 042
     Dates: start: 20170519, end: 20170519

REACTIONS (4)
  - Rhinorrhoea [Recovered/Resolved]
  - Constipation [Recovered/Resolved]
  - Constipation [Recovered/Resolved]
  - Febrile neutropenia [Recovered/Resolved]

NARRATIVE: CASE EVENT DATE: 20170525
